FAERS Safety Report 10155326 (Version 1)
Quarter: 2014Q2

REPORT INFORMATION
  Report Type: Spontaneous
  Country: FR (occurrence: FR)
  Receive Date: 20140506
  Receipt Date: 20140506
  Transmission Date: 20141212
  Serious: Yes (Hospitalization)
  Sender: FDA-Public Use
  Company Number: FR-TEVA-479555ISR

PATIENT
  Age: 50 Year
  Sex: Female

DRUGS (2)
  1. NAPROXENE SODIQUE TEVA 500MG [Suspect]
     Indication: CERVICOBRACHIAL SYNDROME
     Route: 048
     Dates: start: 2013, end: 20140314
  2. TAVANIC 250MG [Suspect]
     Indication: BRONCHITIS
     Dosage: 3 DOSAGE FORMS DAILY;
     Route: 048
     Dates: start: 20140312, end: 20140314

REACTIONS (1)
  - Neutropenia [Recovered/Resolved]
